FAERS Safety Report 8960543 (Version 1)
Quarter: 2012Q4

REPORT INFORMATION
  Report Type: Spontaneous
  Country: DE (occurrence: None)
  Receive Date: 20121203
  Receipt Date: 20121203
  Transmission Date: 20130627
  Serious: Yes (Hospitalization)
  Sender: FDA-Public Use
  Company Number: DE-2012-3883

PATIENT
  Age: 71 Year
  Sex: Female
  Weight: 91.5 kg

DRUGS (12)
  1. NAVELBINE [Suspect]
     Indication: BREAST CANCER
     Route: 042
     Dates: start: 20120802
  2. BEVACIZUMAB [Suspect]
     Indication: BREAST CANCER
     Route: 042
  3. CAPECITABINE [Suspect]
     Indication: BREAST CANCER
     Route: 042
  4. ASPIRIN (ACETYLSICYLIC ACID) [Concomitant]
  5. METOPROLOL (METOPROLOL TARTRATE) [Concomitant]
  6. RAMIPRIL (RAMIPRIL) [Concomitant]
  7. SPIRONOLACTONE (SPIRONOLACTONE) [Concomitant]
  8. TORASEMIDE (TORASEMIDE) [Concomitant]
  9. CARBIMAZOLE (CARBIMAZOLE) [Concomitant]
  10. TIOTROPIUM BROMIDE (TIOTROPIUM BROMIDE) [Concomitant]
  11. DIPYRONE (METAMIZOLE SODIUM) [Concomitant]
  12. LORAZEPAM (LORAZEPAM) [Concomitant]

REACTIONS (7)
  - Supraventricular tachycardia [None]
  - Blood creatinine increased [None]
  - Blood potassium increased [None]
  - Troponin I increased [None]
  - Aortic stenosis [None]
  - Cardiac aneurysm [None]
  - Emphysema [None]
